FAERS Safety Report 11629936 (Version 1)
Quarter: 2015Q4

REPORT INFORMATION
  Report Type: Spontaneous
  Country: DE (occurrence: DE)
  Receive Date: 20151014
  Receipt Date: 20151014
  Transmission Date: 20160304
  Serious: Yes (Hospitalization, Other)
  Sender: FDA-Public Use
  Company Number: DE-INCYTE CORPORATION-2015IN005101

PATIENT
  Age: 67 Year
  Sex: Male

DRUGS (2)
  1. JAKAFI [Suspect]
     Active Substance: RUXOLITINIB
     Dosage: 10 MG, BID (1 DF, BID)
     Route: 065
     Dates: start: 2015
  2. JAKAFI [Suspect]
     Active Substance: RUXOLITINIB
     Indication: MYELOFIBROSIS
     Dosage: 20 MG, QD (2 DF, QD SINCE TWO MONTHS)
     Route: 065
     Dates: start: 201508

REACTIONS (7)
  - Atypical pneumonia [Recovering/Resolving]
  - Infection [Recovering/Resolving]
  - Leukopenia [Recovering/Resolving]
  - Visual impairment [Recovering/Resolving]
  - Sleep disorder [Unknown]
  - Thrombocytopenia [Recovering/Resolving]
  - Hallucination [Recovering/Resolving]

NARRATIVE: CASE EVENT DATE: 2015
